FAERS Safety Report 15745217 (Version 1)
Quarter: 2018Q4

REPORT INFORMATION
  Report Type: Spontaneous
  Country: NL (occurrence: NL)
  Receive Date: 20181220
  Receipt Date: 20181220
  Transmission Date: 20190205
  Serious: Yes (Other)
  Sender: FDA-Public Use
  Company Number: NL-PFIZER INC-2018518031

PATIENT
  Age: 31 Year
  Sex: Female

DRUGS (1)
  1. DEPO-PROVERA [Suspect]
     Active Substance: MEDROXYPROGESTERONE ACETATE
     Indication: CONTRACEPTION
     Dosage: 1 DF, EVERY 3 MONTHS (1 INJECTION PER 3 MONTHS)
     Route: 050
     Dates: start: 20181019, end: 20181019

REACTIONS (1)
  - Injection site necrosis [Not Recovered/Not Resolved]

NARRATIVE: CASE EVENT DATE: 20181019
